FAERS Safety Report 21145955 (Version 2)
Quarter: 2023Q1

REPORT INFORMATION
  Report Type: Report from Study
  Country: EG (occurrence: EG)
  Receive Date: 20220729
  Receipt Date: 20230104
  Transmission Date: 20230418
  Serious: Yes (Death, Hospitalization, Other)
  Sender: FDA-Public Use
  Company Number: EG-NOVARTISPH-NVSC2022EG143470

PATIENT
  Age: 44 Year
  Sex: Female

DRUGS (2)
  1. PIQRAY [Suspect]
     Active Substance: ALPELISIB
     Indication: Breast cancer metastatic
     Dosage: 2 DOSAGE FORM, QD (150MG 2 TABLET ONCE DAILY)
     Route: 048
     Dates: start: 20220428, end: 20220507
  2. PIQRAY [Suspect]
     Active Substance: ALPELISIB
     Indication: Metastases to bone
     Dosage: 2 DOSAGE FORM, QD (150MG 2 TABLET ONCE DAILY)
     Route: 048
     Dates: start: 20220717, end: 20220720

REACTIONS (6)
  - Death [Fatal]
  - Hyperglycaemia [Recovering/Resolving]
  - Metastases to liver [Not Recovered/Not Resolved]
  - Metastases to lymph nodes [Not Recovered/Not Resolved]
  - Pulmonary oedema [Not Recovered/Not Resolved]
  - General physical health deterioration [Unknown]

NARRATIVE: CASE EVENT DATE: 20220507
